FAERS Safety Report 18595547 (Version 2)
Quarter: 2020Q4

REPORT INFORMATION
  Report Type: Spontaneous
  Country: US (occurrence: US)
  Receive Date: 20201209
  Receipt Date: 20201218
  Transmission Date: 20210114
  Serious: No
  Sender: FDA-Public Use
  Company Number: US-PFIZER INC-2020484062

PATIENT
  Age: 70 Year
  Sex: Male
  Weight: 95.25 kg

DRUGS (1)
  1. VYNDAQEL [Suspect]
     Active Substance: TAFAMIDIS MEGLUMINE
     Indication: CARDIAC AMYLOIDOSIS
     Dosage: 80 MG, DAILY (20 MG, 4 CAPSULES A DAY)
     Route: 048
     Dates: start: 2019

REACTIONS (1)
  - Gait disturbance [Unknown]
